FAERS Safety Report 15831746 (Version 1)
Quarter: 2018Q4

REPORT INFORMATION
  Report Type: Spontaneous
  Country: US (occurrence: US)
  Receive Date: 20181219
  Receipt Date: 20181219
  Transmission Date: 20190205
  Serious: No
  Sender: FDA-Public Use
  Company Number: None

PATIENT
  Age: 73 Year
  Sex: Female
  Weight: 46.27 kg

DRUGS (3)
  1. REMICADE [Suspect]
     Active Substance: INFLIXIMAB
     Indication: SENILE OSTEOPOROSIS
     Dosage: OTHER FREQUENCY:QOW, THEN Q6W;?
     Route: 042
     Dates: start: 201806
  2. REMICADE [Suspect]
     Active Substance: INFLIXIMAB
     Indication: OSTEOPOROSIS
  3. REMICADE [Suspect]
     Active Substance: INFLIXIMAB
     Indication: RHEUMATOID ARTHRITIS
     Dosage: OTHER FREQUENCY:QOW, THEN Q6W;?
     Route: 042
     Dates: start: 201806

REACTIONS (4)
  - Palpitations [None]
  - Fall [None]
  - Upper respiratory tract infection [None]
  - Upper limb fracture [None]
